FAERS Safety Report 13953861 (Version 1)
Quarter: 2017Q3

REPORT INFORMATION
  Report Type: Spontaneous
  Country: US (occurrence: US)
  Receive Date: 20170911
  Receipt Date: 20170911
  Transmission Date: 20171128
  Serious: Yes (Other)
  Sender: FDA-Public Use
  Company Number: US-TEVA-721669USA

PATIENT
  Age: 76 Year
  Sex: Female
  Weight: 77.11 kg

DRUGS (2)
  1. VENLAFAXINE [Suspect]
     Active Substance: VENLAFAXINE HYDROCHLORIDE
     Indication: DEPRESSION
     Route: 048
  2. VENLAFAXINE [Suspect]
     Active Substance: VENLAFAXINE HYDROCHLORIDE
     Indication: ANXIETY
     Route: 048

REACTIONS (5)
  - Tongue haemorrhage [Recovered/Resolved]
  - Reaction to excipient [Unknown]
  - Swollen tongue [Recovered/Resolved]
  - Tongue erythema [Recovered/Resolved]
  - Upper limb fracture [Unknown]

NARRATIVE: CASE EVENT DATE: 2016
